FAERS Safety Report 17616255 (Version 1)
Quarter: 2020Q2

REPORT INFORMATION
  Report Type: Spontaneous
  Country: US (occurrence: US)
  Receive Date: 20200401
  Receipt Date: 20200401
  Transmission Date: 20200713
  Serious: Yes (Life-Threatening, Disabling, Other)
  Sender: FDA-Public Use
  Company Number: None

PATIENT
  Age: 1 Month
  Sex: Female
  Weight: 3.66 kg

DRUGS (2)
  1. ZANTAC [Suspect]
     Active Substance: RANITIDINE HYDROCHLORIDE
     Indication: LARYNGOMALACIA
     Dosage: ?          QUANTITY:1 ML;?
     Route: 048
     Dates: start: 20200224, end: 20200401
  2. NYSTATIN. [Concomitant]
     Active Substance: NYSTATIN

REACTIONS (3)
  - Dyspnoea [None]
  - Asphyxia [None]
  - Condition aggravated [None]

NARRATIVE: CASE EVENT DATE: 20200224
